FAERS Safety Report 22148586 (Version 1)
Quarter: 2023Q1

REPORT INFORMATION
  Report Type: Spontaneous
  Country: US (occurrence: US)
  Receive Date: 20230328
  Receipt Date: 20230328
  Transmission Date: 20230417
  Serious: No
  Sender: FDA-Public Use
  Company Number: US-SA-SAC20230324001512

PATIENT
  Age: 15 Year
  Sex: Male
  Weight: 47.17 kg

DRUGS (4)
  1. DUPIXENT [Suspect]
     Active Substance: DUPILUMAB
     Indication: Illness
     Dosage: 200 MG, QOW
     Route: 058
     Dates: start: 202209
  2. TRETINOIN [Concomitant]
     Active Substance: TRETINOIN
     Dosage: UNK
  3. LIDOCAINE HYDROCHLORIDE [Concomitant]
     Active Substance: LIDOCAINE HYDROCHLORIDE
     Dosage: UNK
  4. BUDESONIDE [Concomitant]
     Active Substance: BUDESONIDE

REACTIONS (7)
  - Lip swelling [Not Recovered/Not Resolved]
  - Eye disorder [Recovered/Resolved]
  - Flushing [Not Recovered/Not Resolved]
  - Pyrexia [Recovered/Resolved]
  - Aphthous ulcer [Not Recovered/Not Resolved]
  - Scratch [Unknown]
  - Skin discolouration [Unknown]

NARRATIVE: CASE EVENT DATE: 20230316
